FAERS Safety Report 6570823-1 (Version None)
Quarter: 2010Q1

REPORT INFORMATION
  Report Type: 
  Country: None (occurrence: None)
  Receive Date: 20100204
  Receipt Date: 20100127
  Transmission Date: 20100710
  Serious: Yes (Disabling)
  Sender: FDA-Public Use
  Company Number: IN-JNJFOC-20100200023

PATIENT
  Sex: Male

DRUGS (1)
  1. TOPAMAC [Suspect]
     Indication: DRUG USE FOR UNKNOWN INDICATION
     Dosage: 1/2 MEDICINE IN THE MORNING AND HALF IN THE NIGH
     Route: 048

REACTIONS (3)
  - ABNORMAL BEHAVIOUR [None]
  - BLINDNESS [None]
  - INSOMNIA [None]
